FAERS Safety Report 17685057 (Version 1)
Quarter: 2020Q2

REPORT INFORMATION
  Report Type: Report from Study
  Country: GF (occurrence: GF)
  Receive Date: 20200420
  Receipt Date: 20200420
  Transmission Date: 20200714
  Serious: Yes (Other)
  Sender: FDA-Public Use
  Company Number: GF-GLAXOSMITHKLINE-GF2020GSK065911

PATIENT
  Sex: Female

DRUGS (3)
  1. LAMIVUDINE. [Suspect]
     Active Substance: LAMIVUDINE
     Indication: HIV INFECTION
     Dosage: UNK
  2. ZIDOVUDINE. [Suspect]
     Active Substance: ZIDOVUDINE
     Indication: HIV INFECTION
     Dosage: UNK
  3. LOPINAVIRUM + RITONAVIRUM [Suspect]
     Active Substance: LOPINAVIR\RITONAVIR
     Indication: HIV INFECTION
     Dosage: UNK

REACTIONS (8)
  - Abdominal pain [Unknown]
  - Condition aggravated [Unknown]
  - Exposure during pregnancy [Unknown]
  - Haemorrhage in pregnancy [Unknown]
  - Premature labour [Unknown]
  - Immune reconstitution inflammatory syndrome [Unknown]
  - Histoplasmosis [Unknown]
  - Anaemia [Unknown]
